FAERS Safety Report 4340970-3 (Version None)
Quarter: 2004Q2

REPORT INFORMATION
  Report Type: 
  Country: None (occurrence: None)
  Receive Date: 20040413
  Receipt Date: 20040402
  Transmission Date: 20050107
  Serious: Yes (Life-Threatening, Disabling, Other)
  Sender: FDA-Public Use
  Company Number: 2004201135JP

PATIENT
  Age: 70 Year
  Sex: Male

DRUGS (3)
  1. CAMPTOSAR [Suspect]
     Indication: COLORECTAL CANCER RECURRENT
     Dosage: 230 MG, CYCLIC, IV DRIP
     Route: 041
     Dates: start: 20040218, end: 20040218
  2. DECADRON [Concomitant]
  3. GRANISETRON (GRANISETRON) [Concomitant]

REACTIONS (5)
  - ALANINE AMINOTRANSFERASE INCREASED [None]
  - ASPARTATE AMINOTRANSFERASE INCREASED [None]
  - HEPATIC FUNCTION ABNORMAL [None]
  - LARGE INTESTINE PERFORATION [None]
  - LEUKOPENIA [None]
